FAERS Safety Report 7929733-7 (Version None)
Quarter: 2011Q4

REPORT INFORMATION
  Report Type: 
  Country: None (occurrence: None)
  Receive Date: 20111121
  Receipt Date: 20111115
  Transmission Date: 20120403
  Serious: Yes (Other)
  Sender: FDA-Public Use
  Company Number: PHEH2011US06500

PATIENT
  Age: 22 Year
  Sex: Female

DRUGS (4)
  1. TOBI [Suspect]
     Indication: ASTHMA
  2. TOBI [Suspect]
     Indication: HYPOGAMMAGLOBULINAEMIA
     Dosage: 300 MG, BID
     Dates: start: 20110727
  3. PULMOZYME [Concomitant]
  4. TOBI [Suspect]
     Indication: CHRONIC RESPIRATORY FAILURE

REACTIONS (1)
  - LOWER LIMB FRACTURE [None]
